FAERS Safety Report 4665227-2 (Version None)
Quarter: 2005Q2

REPORT INFORMATION
  Report Type: 
  Country: None (occurrence: None)
  Receive Date: 20050517
  Receipt Date: 20050504
  Transmission Date: 20051028
  Serious: Yes (Other)
  Sender: FDA-Public Use
  Company Number: USA050187495

PATIENT
  Age: 70 Year
  Sex: Female
  Weight: 58 kg

DRUGS (6)
  1. FORTEO [Suspect]
     Indication: OSTEOPOROSIS
     Dosage: 20 UG/1 DAY
     Dates: start: 20040601, end: 20050209
  2. IRON [Concomitant]
  3. CENTRUM [Concomitant]
  4. CALCIUM GLUCONATE [Concomitant]
  5. LISINOPRIL [Concomitant]
  6. PREMARIN [Concomitant]

REACTIONS (10)
  - ANAEMIA [None]
  - BLOOD UREA INCREASED [None]
  - DIZZINESS POSTURAL [None]
  - DRUG DOSE OMISSION [None]
  - GASTRITIS [None]
  - INCORRECT DOSE ADMINISTERED [None]
  - PHARMACEUTICAL PRODUCT COMPLAINT [None]
  - PLATELET COUNT DECREASED [None]
  - REFLUX OESOPHAGITIS [None]
  - SYNCOPE [None]
